FAERS Safety Report 19415225 (Version 2)
Quarter: 2021Q2

REPORT INFORMATION
  Report Type: Report from Study
  Country: DE (occurrence: AT)
  Receive Date: 20210614
  Receipt Date: 20210625
  Transmission Date: 20210717
  Serious: Yes (Hospitalization)
  Sender: FDA-Public Use
  Company Number: AT-ELI_LILLY_AND_COMPANY-AT202106005594

PATIENT
  Age: 59 Year
  Sex: Male
  Weight: 54 kg

DRUGS (5)
  1. CETUXIMAB. [Suspect]
     Active Substance: CETUXIMAB
     Indication: SQUAMOUS CELL CARCINOMA OF HEAD AND NECK
     Dosage: 670 MG, UNKNOWN
     Route: 042
     Dates: start: 20201203
  2. CETUXIMAB. [Suspect]
     Active Substance: CETUXIMAB
     Dosage: UNK UNK, UNKNOWN
     Route: 042
     Dates: start: 20210602
  3. PACLITAXEL. [Concomitant]
     Active Substance: PACLITAXEL
     Dosage: 300 MG, UNKNOWN
     Route: 042
     Dates: start: 20210416
  4. CETUXIMAB. [Suspect]
     Active Substance: CETUXIMAB
     Dosage: 405 MG, UNKNOWN
     Route: 042
     Dates: start: 20210525, end: 20210525
  5. PACLITAXEL. [Concomitant]
     Active Substance: PACLITAXEL
     Indication: SQUAMOUS CELL CARCINOMA OF HEAD AND NECK
     Dosage: 220 MG, UNKNOWN
     Route: 042
     Dates: start: 20201203

REACTIONS (3)
  - Weight decreased [Not Recovered/Not Resolved]
  - Hypokalaemia [Not Recovered/Not Resolved]
  - Hypomagnesaemia [Not Recovered/Not Resolved]

NARRATIVE: CASE EVENT DATE: 20210601
